FAERS Safety Report 15782622 (Version 1)
Quarter: 2019Q1

REPORT INFORMATION
  Report Type: Spontaneous
  Country: US (occurrence: US)
  Receive Date: 20190102
  Receipt Date: 20190102
  Transmission Date: 20190417
  Serious: No
  Sender: FDA-Public Use
  Company Number: US-ACTELION-A-US2018-183756

PATIENT
  Age: 64 Year
  Sex: Female

DRUGS (1)
  1. UPTRAVI [Suspect]
     Active Substance: SELEXIPAG
     Indication: PULMONARY ARTERIAL HYPERTENSION
     Dosage: 200 MCG, BID
     Route: 048
     Dates: start: 20181206, end: 20181207

REACTIONS (5)
  - Drug intolerance [Unknown]
  - Headache [Unknown]
  - Musculoskeletal pain [Unknown]
  - Nausea [Unknown]
  - Neck pain [Unknown]

NARRATIVE: CASE EVENT DATE: 20181206
